FAERS Safety Report 5342578-X (Version None)
Quarter: 2007Q2

REPORT INFORMATION
  Report Type: 
  Country: None (occurrence: None)
  Receive Date: 20070601
  Receipt Date: 20070112
  Transmission Date: 20071010
  Serious: No
  Sender: FDA-Public Use
  Company Number: A0635518A

PATIENT
  Age: 2 Year
  Sex: Female

DRUGS (2)
  1. AUGMENTIN '125' [Suspect]
     Indication: EAR INFECTION
     Dosage: 1.25TSP TWICE PER DAY
     Route: 048
     Dates: end: 20070101
  2. ALBUTEROL [Concomitant]

REACTIONS (4)
  - ALOPECIA [None]
  - DERMATITIS DIAPER [None]
  - LIP SWELLING [None]
  - URTICARIA [None]
